FAERS Safety Report 7860124-3 (Version None)
Quarter: 2011Q4

REPORT INFORMATION
  Report Type: 
  Country: None (occurrence: None)
  Receive Date: 20111027
  Receipt Date: 20111019
  Transmission Date: 20120403
  Serious: Yes (Hospitalization, Other)
  Sender: FDA-Public Use
  Company Number: US-BAYER-2011-073689

PATIENT
  Age: 26 Year
  Sex: Female
  Weight: 68.481 kg

DRUGS (1)
  1. MIRENA [Suspect]
     Indication: CONTRACEPTION
     Dosage: 20 MCG/24HR, CONT
     Route: 015
     Dates: start: 20110729, end: 20110824

REACTIONS (3)
  - PAIN [None]
  - UTERINE PERFORATION [None]
  - DEVICE DISLOCATION [None]
